FAERS Safety Report 9681170 (Version 1)
Quarter: 2013Q4

REPORT INFORMATION
  Report Type: Spontaneous
  Country: US (occurrence: US)
  Receive Date: 20131111
  Receipt Date: 20131111
  Transmission Date: 20140711
  Serious: Yes (Other)
  Sender: FDA-Public Use
  Company Number: US-SA-2013SA115036

PATIENT
  Age: 59 Year
  Sex: Male

DRUGS (2)
  1. LANTUS SOLOSTAR [Suspect]
     Indication: TYPE 2 DIABETES MELLITUS
     Dosage: DOSE: 60 UNITS OR UPTO 80 UNITS DAILY
     Route: 065
     Dates: start: 200702
  2. HUMALIN [Suspect]
     Route: 065

REACTIONS (1)
  - Myocardial infarction [Unknown]
